FAERS Safety Report 10053882 (Version 3)
Quarter: 2014Q2

REPORT INFORMATION
  Report Type: Spontaneous
  Country: US (occurrence: US)
  Receive Date: 20140402
  Receipt Date: 20140523
  Transmission Date: 20141212
  Serious: Yes (Other)
  Sender: FDA-Public Use
  Company Number: US-ALLERGAN-1406027US

PATIENT
  Sex: Female

DRUGS (2)
  1. LASTACAFT [Suspect]
     Indication: LACRIMATION INCREASED
     Dosage: ONE DROP IN EACH EYE ONCE PER DAY
     Route: 047
     Dates: start: 20140218
  2. LASTACAFT [Suspect]
     Dosage: ONE DROP IN THE MORNING FOR ONE WEEK
     Route: 047
     Dates: start: 201311

REACTIONS (19)
  - Corneal erosion [Unknown]
  - Visual acuity reduced [Unknown]
  - Eye pain [Unknown]
  - Impaired driving ability [Unknown]
  - Activities of daily living impaired [Unknown]
  - Headache [Unknown]
  - Diplopia [Unknown]
  - Photophobia [Unknown]
  - Foreign body sensation in eyes [Unknown]
  - Depression [Unknown]
  - Anxiety [Unknown]
  - Epistaxis [Unknown]
  - Ear pain [Unknown]
  - Fear [Unknown]
  - Fear [Unknown]
  - Ocular hyperaemia [Unknown]
  - Instillation site pain [Unknown]
  - Instillation site pruritus [Unknown]
  - Vision blurred [Unknown]
